FAERS Safety Report 4970072-4 (Version None)
Quarter: 2006Q2

REPORT INFORMATION
  Report Type: 
  Country: None (occurrence: None)
  Receive Date: 20060406
  Receipt Date: 20060324
  Transmission Date: 20061013
  Serious: Yes (Hospitalization)
  Sender: FDA-Public Use
  Company Number: TRP_0738_2006

PATIENT
  Age: 54 Year
  Sex: Male

DRUGS (11)
  1. RIBASPHERE [Suspect]
     Indication: HEPATITIS C
     Dosage: 600 MG BID PO
     Route: 048
     Dates: start: 20060124, end: 20060228
  2. INFERGEN [Suspect]
     Indication: HEPATITIS C
     Dosage: 9 MCG QDAY SC
     Route: 058
     Dates: start: 20060124, end: 20060228
  3. RIBASPHERE [Suspect]
     Indication: HEPATITIS C
     Dosage: 800 MG QDAY PO
     Route: 048
     Dates: start: 20050313
  4. INFERGEN [Suspect]
     Indication: HEPATITIS C
     Dosage: 6 MCG QDAY SC
     Route: 058
     Dates: start: 20050313
  5. STRATTERA [Concomitant]
  6. WELLBUTRIN [Concomitant]
  7. ATIVAN [Concomitant]
  8. AMBIEN [Concomitant]
  9. CENTRUM SILVER [Concomitant]
  10. TYLENOL (CAPLET) [Concomitant]
  11. VALTREX [Concomitant]

REACTIONS (3)
  - APPENDIX DISORDER [None]
  - ASTHENIA [None]
  - COLITIS [None]
